FAERS Safety Report 24240259 (Version 1)
Quarter: 2024Q3

REPORT INFORMATION
  Report Type: Report from Study
  Country: US (occurrence: None)
  Receive Date: 20240822
  Receipt Date: 20240822
  Transmission Date: 20241016
  Serious: Yes (Hospitalization, Other)
  Sender: ASTRAZENECA
  Company Number: 2024A185942

PATIENT
  Sex: Female

DRUGS (1)
  1. LYNPARZA [Suspect]
     Active Substance: OLAPARIB
     Route: 048

REACTIONS (6)
  - Cough [Unknown]
  - Tendonitis [Unknown]
  - Dyspnoea [Unknown]
  - Choking [Unknown]
  - Respiratory disorder [Unknown]
  - Syncope [Unknown]
